FAERS Safety Report 6409435-9 (Version None)
Quarter: 2009Q4

REPORT INFORMATION
  Report Type: 
  Country: None (occurrence: None)
  Receive Date: 20091019
  Receipt Date: 20091019
  Transmission Date: 20100525
  Serious: Yes (Hospitalization)
  Sender: FDA-Public Use
  Company Number: None

PATIENT
  Age: 58 Year
  Sex: Female
  Weight: 104.3273 kg

DRUGS (1)
  1. HUMIRA [Suspect]
     Indication: RHEUMATOID ARTHRITIS
     Dosage: 40MG PREFILLED WEEKLY SQ
     Route: 058
     Dates: start: 20070125, end: 20071125

REACTIONS (11)
  - ERYTHEMA [None]
  - JAW DISORDER [None]
  - LIP SWELLING [None]
  - MOOD SWINGS [None]
  - MUSCULAR WEAKNESS [None]
  - PAIN [None]
  - RASH PUSTULAR [None]
  - SKIN ULCER [None]
  - SWELLING [None]
  - SWELLING FACE [None]
  - WEIGHT DECREASED [None]
